FAERS Safety Report 24738370 (Version 1)
Quarter: 2024Q4

REPORT INFORMATION
  Report Type: Spontaneous
  Country: US (occurrence: US)
  Receive Date: 20241216
  Receipt Date: 20241216
  Transmission Date: 20250115
  Serious: Yes (Other)
  Sender: PFIZER
  Company Number: US-PFIZER INC-PV202400161875

PATIENT
  Age: 77 Year
  Sex: Female
  Weight: 62 kg

DRUGS (10)
  1. BOSULIF [Suspect]
     Active Substance: BOSUTINIB MONOHYDRATE
     Indication: Chronic myeloid leukaemia
     Dosage: 500 MG, DAILY
     Dates: start: 20240804, end: 20240911
  2. BOSULIF [Suspect]
     Active Substance: BOSUTINIB MONOHYDRATE
     Indication: Bone marrow disorder
     Dosage: 400 MG
     Route: 048
     Dates: start: 20241016
  3. BOSULIF [Suspect]
     Active Substance: BOSUTINIB MONOHYDRATE
     Indication: Thrombosis
  4. BOSULIF [Suspect]
     Active Substance: BOSUTINIB MONOHYDRATE
     Indication: Marrow hyperplasia
  5. BOSULIF [Suspect]
     Active Substance: BOSUTINIB MONOHYDRATE
     Indication: Acute megakaryocytic leukaemia
  6. BOSULIF [Suspect]
     Active Substance: BOSUTINIB MONOHYDRATE
     Indication: Marrow hyperplasia
  7. BOSULIF [Suspect]
     Active Substance: BOSUTINIB MONOHYDRATE
     Indication: Megakaryocytes
  8. DASATINIB [Concomitant]
     Active Substance: DASATINIB
     Dosage: UNK
     Dates: start: 202310
  9. DASATINIB [Concomitant]
     Active Substance: DASATINIB
     Dosage: 80 MG, DAILY
     Dates: start: 202311
  10. HYDREA [Concomitant]
     Active Substance: HYDROXYUREA
     Dosage: UNK
     Dates: start: 202310

REACTIONS (3)
  - Cytopenia [Unknown]
  - Pancytopenia [Unknown]
  - Leukocytosis [Unknown]
